FAERS Safety Report 5836638-4 (Version None)
Quarter: 2008Q3

REPORT INFORMATION
  Report Type: 
  Country: None (occurrence: None)
  Receive Date: 20080807
  Receipt Date: 20080707
  Transmission Date: 20090109
  Serious: No
  Sender: FDA-Public Use
  Company Number: US-BAYER-200824125NA

PATIENT
  Age: 37 Year
  Sex: Female
  Weight: 51 kg

DRUGS (2)
  1. YAZ [Suspect]
     Indication: CONTRACEPTION
     Dates: start: 20060101, end: 20080211
  2. IMITREX [Concomitant]

REACTIONS (4)
  - AXILLARY PAIN [None]
  - ERYTHEMA [None]
  - NO ADVERSE EVENT [None]
  - THROMBOPHLEBITIS SUPERFICIAL [None]
